FAERS Safety Report 22017142 (Version 2)
Quarter: 2023Q1

REPORT INFORMATION
  Report Type: Spontaneous
  Country: US (occurrence: US)
  Receive Date: 20230221
  Receipt Date: 20230303
  Transmission Date: 20230418
  Serious: No
  Sender: FDA-Public Use
  Company Number: US-IDORSIA-003466-2023-US

PATIENT
  Sex: Female

DRUGS (4)
  1. QUVIVIQ [Suspect]
     Active Substance: DARIDOREXANT
     Indication: Insomnia
     Dosage: 50 MG, QD
     Route: 048
     Dates: start: 202301
  2. QUVIVIQ [Suspect]
     Active Substance: DARIDOREXANT
     Dosage: 25 MG (HALF OF 50MG), QD
     Route: 048
  3. SIMVASTATIN [Concomitant]
     Active Substance: SIMVASTATIN
     Indication: Blood cholesterol
  4. VITAMINS [Concomitant]
     Active Substance: VITAMINS

REACTIONS (8)
  - Hypoaesthesia oral [Recovered/Resolved]
  - Illness [Recovered/Resolved]
  - Wrong technique in product usage process [Unknown]
  - Depression [Unknown]
  - Hypervigilance [Unknown]
  - Feeling abnormal [Unknown]
  - Dizziness [Recovered/Resolved]
  - Insomnia [Unknown]
